FAERS Safety Report 11826428 (Version 2)
Quarter: 2015Q4

REPORT INFORMATION
  Report Type: Report from Study
  Country: US (occurrence: US)
  Receive Date: 20151211
  Receipt Date: 20151228
  Transmission Date: 20160305
  Serious: Yes (Hospitalization)
  Sender: FDA-Public Use
  Company Number: US-BAYER-2015-477981

PATIENT
  Age: 77 Year
  Sex: Female

DRUGS (5)
  1. STIVARGA [Suspect]
     Active Substance: REGORAFENIB
     Indication: METASTASES TO LIVER
  2. STIVARGA [Suspect]
     Active Substance: REGORAFENIB
     Indication: RECTAL CANCER
     Dosage: 120 MG, QD
     Route: 048
     Dates: start: 20151130, end: 2015
  3. STIVARGA [Suspect]
     Active Substance: REGORAFENIB
     Indication: COLON CANCER
     Dosage: 120 MG, QD
     Route: 048
     Dates: start: 20151119, end: 20151128
  4. BAG BALM [Concomitant]
     Indication: SKIN DISORDER
     Route: 061
  5. NUCROSS EPSOM SALT [Concomitant]
     Indication: SKIN DISORDER
     Dosage: UNK UNK, QD
     Route: 061

REACTIONS (9)
  - Dizziness [Recovered/Resolved]
  - Fluid intake reduced [None]
  - Malaise [None]
  - Apparent death [None]
  - Dizziness [None]
  - Dehydration [None]
  - Feeding disorder [None]
  - General physical health deterioration [None]
  - Fatigue [None]

NARRATIVE: CASE EVENT DATE: 2015
